FAERS Safety Report 7630254-X (Version None)
Quarter: 2011Q3

REPORT INFORMATION
  Report Type: 
  Country: None (occurrence: None)
  Receive Date: 20110722
  Receipt Date: 20110715
  Transmission Date: 20111222
  Serious: Yes (Hospitalization)
  Sender: FDA-Public Use
  Company Number: JP-CEPHALON-2011001446

PATIENT
  Age: 52 Year
  Sex: Female

DRUGS (11)
  1. FUROSEMIDE [Concomitant]
     Dates: start: 20110303
  2. ATORVASTATIN [Concomitant]
     Dates: start: 20110303
  3. IMIDAPRIL [Concomitant]
     Dates: start: 20110303
  4. FAMOTIDINE [Concomitant]
     Dates: start: 20110303, end: 20110317
  5. SPIRONOLACTONE [Concomitant]
     Dates: start: 20110303
  6. TRICHLORMETHIAZIDE [Concomitant]
     Dates: start: 20110303
  7. PIMOBENDAN [Concomitant]
     Dates: start: 20110303
  8. DENOPAMINE [Concomitant]
     Dates: start: 20110303
  9. CARVEDILOL [Concomitant]
     Dates: start: 20110303
  10. BENDAMUSTINE HCL [Suspect]
     Indication: B-CELL LYMPHOMA
     Route: 042
     Dates: start: 20110303, end: 20110304
  11. RITUXIMAB [Concomitant]
     Indication: B-CELL LYMPHOMA
     Dates: start: 20110224, end: 20110224

REACTIONS (8)
  - RENAL FAILURE [None]
  - HYPERURICAEMIA [None]
  - LYMPHOCYTE COUNT DECREASED [None]
  - VOMITING [None]
  - BLOOD CREATININE INCREASED [None]
  - BLOOD UREA INCREASED [None]
  - HYPONATRAEMIA [None]
  - DECREASED APPETITE [None]
